FAERS Safety Report 26040900 (Version 1)
Quarter: 2025Q4

REPORT INFORMATION
  Report Type: Spontaneous
  Country: BR (occurrence: BR)
  Receive Date: 20251113
  Receipt Date: 20251113
  Transmission Date: 20260118
  Serious: Yes (Death, Hospitalization, Other)
  Sender: DAIICHI
  Company Number: BR-DSJP-DS-2025-176513-BR

PATIENT
  Age: 37 Year
  Sex: Female

DRUGS (2)
  1. ENHERTU [Suspect]
     Active Substance: FAM-TRASTUZUMAB DERUXTECAN-NXKI
     Indication: Breast cancer metastatic
     Dosage: UNK
     Route: 065
     Dates: start: 20230920, end: 20230920
  2. ENHERTU [Suspect]
     Active Substance: FAM-TRASTUZUMAB DERUXTECAN-NXKI
     Dosage: UNK
     Route: 065
     Dates: start: 202310, end: 202310

REACTIONS (5)
  - Metastases to bone [Fatal]
  - Metastases to liver [Fatal]
  - Metastases to nervous system [Fatal]
  - Metastases to meninges [Fatal]
  - Encephalitis autoimmune [Fatal]
